FAERS Safety Report 9982405 (Version 1)
Quarter: 2014Q1

REPORT INFORMATION
  Report Type: Report from Study
  Country: US (occurrence: US)
  Receive Date: 20140307
  Receipt Date: 20140307
  Transmission Date: 20141002
  Serious: No
  Sender: FDA-Public Use
  Company Number: US-ABBVIE-13P-163-1180325-00

PATIENT
  Age: 61 Year
  Sex: Female

DRUGS (4)
  1. HUMIRA [Suspect]
     Indication: PSORIATIC ARTHROPATHY
     Dates: start: 20131009
  2. LEVOTHYROXINE [Concomitant]
     Indication: PRODUCT USED FOR UNKNOWN INDICATION
  3. MELOXICAM [Concomitant]
     Indication: PRODUCT USED FOR UNKNOWN INDICATION
  4. BIODENTICAL HORMONE REPLACEMENT THERAPY [Concomitant]
     Indication: PRODUCT USED FOR UNKNOWN INDICATION
     Dosage: THINKS DIVAGEL, CONTAINS ESTROGEN AND PROGESTERONE OIL.

REACTIONS (8)
  - Fatigue [Recovering/Resolving]
  - Headache [Unknown]
  - Nasal congestion [Unknown]
  - Feeling cold [Unknown]
  - Nasopharyngitis [Recovered/Resolved]
  - Unevaluable event [Recovered/Resolved]
  - Cough [Recovered/Resolved]
  - Laryngitis [Recovered/Resolved]
